FAERS Safety Report 19181267 (Version 2)
Quarter: 2021Q2

REPORT INFORMATION
  Report Type: Report from Study
  Country: PL (occurrence: PL)
  Receive Date: 20210426
  Receipt Date: 20210525
  Transmission Date: 20210717
  Serious: Yes (Death, Hospitalization)
  Sender: FDA-Public Use
  Company Number: PL-ROCHE-2784626

PATIENT
  Age: 63 Year
  Sex: Male
  Weight: 66 kg

DRUGS (15)
  1. BEVACIZUMAB. [Suspect]
     Active Substance: BEVACIZUMAB
     Indication: HEPATOCELLULAR CARCINOMA
     Dosage: ON 26/JAN/2021, HE RECEIVED THE MOST RECENT DOSE OF BEVACIZUMAB (1065 MG) PRIOR TO SERIOUS ADVERSE E
     Route: 042
     Dates: start: 20181220
  2. ENCORTON [Concomitant]
     Active Substance: PREDNISONE
     Indication: DIARRHOEA
     Route: 048
     Dates: start: 20191220
  3. ESPUMISAN [Concomitant]
     Active Substance: DIMETHICONE
     Indication: DIARRHOEA
     Dates: start: 20200213
  4. PARACETAMOL [Concomitant]
     Active Substance: ACETAMINOPHEN
     Dates: start: 20200922
  5. ENCORTON [Concomitant]
     Active Substance: PREDNISONE
     Route: 048
     Dates: start: 20200610
  6. KALIPOZ [Concomitant]
     Active Substance: POTASSIUM CHLORIDE
     Dates: start: 20200527
  7. ENCORTON [Concomitant]
     Active Substance: PREDNISONE
     Indication: DIARRHOEA
     Route: 048
     Dates: start: 20191220
  8. LOPERAMID [Concomitant]
     Active Substance: LOPERAMIDE
     Indication: DIARRHOEA
     Dates: start: 20190930
  9. ENCORTON [Concomitant]
     Active Substance: PREDNISONE
     Route: 048
     Dates: start: 20200721
  10. URSOFALK [Concomitant]
     Active Substance: URSODIOL
     Indication: DIARRHOEA
     Dates: start: 201811
  11. ATEZOLIZUMAB. [Suspect]
     Active Substance: ATEZOLIZUMAB
     Indication: HEPATOCELLULAR CARCINOMA
     Dosage: ON 26/JAN/2021, HE RECEIVED THE MOST RECENT DOSE OF ATEZOLIZUMAB (1200 MG) PRIOR TO SERIOUS ADVERSE
     Route: 041
     Dates: start: 20181220
  12. FOMUKAL [Concomitant]
     Dates: start: 20200102
  13. EUTHYROX N [Concomitant]
     Active Substance: LEVOTHYROXINE SODIUM
     Indication: HYPOTHYROIDISM
     Dosage: N 112
     Dates: start: 20200718
  14. MESOPRAL [Concomitant]
     Indication: GASTRITIS
     Dates: start: 20181214
  15. ESCITALOPRAM [Concomitant]
     Active Substance: ESCITALOPRAM OXALATE
     Indication: ANXIETY
     Dates: start: 20190904

REACTIONS (2)
  - Death [Fatal]
  - Acidosis [Recovered/Resolved]

NARRATIVE: CASE EVENT DATE: 20210302
